FAERS Safety Report 6065510-2 (Version None)
Quarter: 2009Q1

REPORT INFORMATION
  Report Type: 
  Country: None (occurrence: None)
  Receive Date: 20090204
  Receipt Date: 20090202
  Transmission Date: 20090719
  Serious: Yes (Death, Hospitalization)
  Sender: FDA-Public Use
  Company Number: DE-WYE-G02948709

PATIENT
  Sex: Male
  Weight: 71 kg

DRUGS (37)
  1. TYGACIL [Suspect]
     Indication: CELLULITIS
     Route: 042
     Dates: start: 20081218, end: 20090102
  2. TYGACIL [Suspect]
     Indication: ARTERIOGRAM CORONARY
  3. ALPRAZOLAM [Concomitant]
     Dosage: UNKNOWN
     Route: 048
     Dates: start: 20081222, end: 20090101
  4. ALPRAZOLAM [Concomitant]
     Dosage: UNKNOWN
     Route: 048
     Dates: start: 20081212, end: 20081220
  5. ZYLORIC [Concomitant]
     Route: 048
     Dates: start: 20081213, end: 20081219
  6. AMPHOTERICIN B [Concomitant]
     Route: 048
     Dates: start: 20081230, end: 20090104
  7. NOREPINEPHRINE BITARTRATE [Concomitant]
     Dosage: UNKNOWN
     Route: 042
     Dates: start: 20090102, end: 20090105
  8. AVELOX [Concomitant]
     Route: 048
     Dates: start: 20090102, end: 20090104
  9. CALCIUM GLUCONATE [Concomitant]
     Dosage: UNKNOWN
     Dates: start: 20090103, end: 20090103
  10. DIFLUCAN [Concomitant]
     Dates: start: 20090102, end: 20090104
  11. DILTAHEXAL [Concomitant]
     Dosage: UNKNOWN
     Route: 048
     Dates: start: 20081212, end: 20090101
  12. ETOMIDAT-LIPURO [Concomitant]
     Route: 042
     Dates: start: 20090102, end: 20090102
  13. FURORESE [Concomitant]
     Route: 048
     Dates: start: 20081213, end: 20081219
  14. HALOPERIDOL [Concomitant]
     Dosage: UNKNOWN
     Route: 048
     Dates: start: 20081214, end: 20081231
  15. HEPARIN SODIUM [Concomitant]
     Dates: start: 20090102, end: 20090102
  16. HYDROCORTISONE [Concomitant]
     Route: 042
     Dates: start: 20090101, end: 20090101
  17. HYDROCORTISONE [Concomitant]
     Dates: start: 20090101, end: 20090104
  18. FLUVASTATIN [Concomitant]
     Route: 048
     Dates: start: 20081212, end: 20081218
  19. LEVOTHYROXINE SODIUM [Concomitant]
     Route: 048
     Dates: start: 20081213, end: 20090104
  20. MAGNESIUM VERLA TABLETTEN [Concomitant]
     Dosage: UNKNOWN
     Route: 048
     Dates: start: 20081227, end: 20090101
  21. METRONIDAZOLE HCL [Concomitant]
     Dosage: UNKNOWN
     Dates: start: 20090101, end: 20090104
  22. MIDAZOLAM HCL [Concomitant]
     Dates: start: 20090102, end: 20090102
  23. SODIUM BICARBONATE [Concomitant]
     Route: 042
     Dates: start: 20090103, end: 20090103
  24. METAMIZOLE SODIUM [Concomitant]
     Dosage: UNKNOWN
     Route: 042
     Dates: start: 20081213, end: 20081224
  25. PANTOZOL [Concomitant]
     Route: 048
     Dates: start: 20081213, end: 20090101
  26. PIPERACILLIN SODIUM AND TAZOBACTAM SODIUM [Concomitant]
     Dosage: UNKNOWN
     Route: 042
     Dates: start: 20081215, end: 20090102
  27. PLAVIX [Concomitant]
     Route: 048
     Dates: start: 20081213, end: 20090104
  28. PROPOFOL [Concomitant]
     Dosage: UNKNOWN
     Route: 042
     Dates: start: 20090102, end: 20090104
  29. SANDIMMUNE [Concomitant]
     Indication: IMMUNOSUPPRESSION
     Dosage: IN ACCORDANCE WITH DRUG LEVEL
     Route: 048
     Dates: start: 20081212, end: 20090104
  30. NALOXONE HYDROCHLORIDE/TILIDINE HYDROCHLORIDE [Concomitant]
     Dosage: UNKNOWN
     Route: 048
     Dates: start: 20081218, end: 20081230
  31. TRAMADOL HCL [Concomitant]
     Dosage: UNKNOWN
     Route: 048
     Dates: start: 20081219, end: 20081221
  32. TRAMADOL HCL [Concomitant]
     Dosage: UNKNOWN
     Route: 048
     Dates: start: 20081212, end: 20081213
  33. VANCOMYCIN [Concomitant]
     Route: 042
     Dates: start: 20081216, end: 20081216
  34. VANCOMYCIN [Concomitant]
     Dosage: 500 MG EVERY 1 TOT
     Route: 042
     Dates: start: 20081217, end: 20081218
  35. VIGANTOLETTEN [Concomitant]
     Dosage: 1000 UNIT EVERY 1 DAY
     Route: 048
     Dates: start: 20081213, end: 20090104
  36. THIAMINE HCL [Concomitant]
     Dosage: UNKNOWN
     Route: 042
     Dates: start: 20081217, end: 20090101
  37. DECORTIN-H [Concomitant]
     Indication: IMMUNOSUPPRESSION
     Route: 048
     Dates: start: 20081213, end: 20090102

REACTIONS (7)
  - MULTI-ORGAN FAILURE [None]
  - PANCREATITIS [None]
  - PLEURAL EFFUSION [None]
  - RESPIRATORY FAILURE [None]
  - SEPSIS [None]
  - SEPTIC SHOCK [None]
  - SYSTEMIC INFLAMMATORY RESPONSE SYNDROME [None]
